FAERS Safety Report 9502717 (Version 1)
Quarter: 2013Q3

REPORT INFORMATION
  Report Type: Spontaneous
  Country: FR (occurrence: FR)
  Receive Date: 20130906
  Receipt Date: 20130906
  Transmission Date: 20140515
  Serious: Yes (Other)
  Sender: FDA-Public Use
  Company Number: FR-ASTRAZENECA-2013SE66833

PATIENT
  Age: 20097 Day
  Sex: Female

DRUGS (15)
  1. INEXIUM [Suspect]
     Route: 048
     Dates: start: 20130702, end: 20130726
  2. THALIDOMIDE CELGENE [Suspect]
     Indication: OVARIAN ADENOMA
     Route: 048
     Dates: start: 20130702, end: 20130715
  3. THALIDOMIDE CELGENE [Suspect]
     Indication: PLASMA CELL MYELOMA
     Route: 048
     Dates: start: 20130702, end: 20130715
  4. THALIDOMIDE CELGENE [Suspect]
     Indication: OVARIAN ADENOMA
     Route: 048
     Dates: start: 20130717, end: 20130726
  5. THALIDOMIDE CELGENE [Suspect]
     Indication: PLASMA CELL MYELOMA
     Route: 048
     Dates: start: 20130717, end: 20130726
  6. VELCADE [Suspect]
     Indication: PLASMA CELL MYELOMA
     Route: 048
     Dates: start: 20130702
  7. VELCADE [Suspect]
     Indication: PLASMA CELL MYELOMA
     Route: 048
     Dates: start: 20130706
  8. VELCADE [Suspect]
     Indication: PLASMA CELL MYELOMA
     Route: 048
     Dates: start: 20130710
  9. VELCADE [Suspect]
     Indication: PLASMA CELL MYELOMA
     Route: 048
     Dates: start: 20130713
  10. ZELITREX [Suspect]
     Route: 048
     Dates: start: 20130702, end: 20130726
  11. CERAZETTE [Suspect]
     Route: 048
     Dates: start: 20130715, end: 20130726
  12. DEXAMETHASONE MYLAN [Concomitant]
     Dates: start: 20130702
  13. KARDEGIC [Concomitant]
     Dosage: LONG LASTING TREATMENT, 75 MG, EVERY DAY
     Dates: end: 20130726
  14. CACIT D3 [Concomitant]
     Dosage: LONG LASTING TREATMENT, 2 DF, EVERY DAY
  15. ZOMETA [Concomitant]
     Dates: start: 20130702

REACTIONS (3)
  - Eyelid oedema [Recovered/Resolved]
  - Hepatocellular injury [Recovered/Resolved]
  - Urticaria [Recovered/Resolved]
